FAERS Safety Report 16103627 (Version 1)
Quarter: 2019Q1

REPORT INFORMATION
  Report Type: Spontaneous
  Country: US (occurrence: US)
  Receive Date: 20190322
  Receipt Date: 20190322
  Transmission Date: 20190418
  Serious: No
  Sender: FDA-Public Use
  Company Number: US-009507513-1902USA008773

PATIENT
  Age: 77 Year
  Sex: Male

DRUGS (5)
  1. WARFARIN [Concomitant]
     Active Substance: WARFARIN
  2. BELSOMRA [Suspect]
     Active Substance: SUVOREXANT
     Dosage: CUT A 15MG TABLET INTO PIECES FOR ADMINISTRATION
     Route: 048
     Dates: start: 20190219
  3. TAMSULOSIN HYDROCHLORIDE. [Concomitant]
     Active Substance: TAMSULOSIN HYDROCHLORIDE
  4. BELSOMRA [Suspect]
     Active Substance: SUVOREXANT
     Indication: INSOMNIA
     Dosage: 1, 10MG TABLET TAKEN ONCE NIGHTLY
     Route: 048
     Dates: start: 201902
  5. SINGULAIR [Concomitant]
     Active Substance: MONTELUKAST SODIUM

REACTIONS (4)
  - Drug effect delayed [Not Recovered/Not Resolved]
  - Product administration error [Unknown]
  - Wrong technique in product usage process [Unknown]
  - Circumstance or information capable of leading to medication error [Unknown]

NARRATIVE: CASE EVENT DATE: 201902
